FAERS Safety Report 9900368 (Version 1)
Quarter: 2014Q1

REPORT INFORMATION
  Report Type: Spontaneous
  Country: CA (occurrence: CA)
  Receive Date: 20140216
  Receipt Date: 20140216
  Transmission Date: 20141002
  Serious: Yes (Other)
  Sender: FDA-Public Use
  Company Number: CA-JNJFOC-20131111137

PATIENT
  Age: 26 Year
  Sex: Male
  Weight: 106.6 kg

DRUGS (4)
  1. BENYLIN 1 ALL-IN-ONE COLD AND FLU DAYTIME [Suspect]
     Indication: INFLUENZA
     Route: 048
     Dates: start: 20131001, end: 20131001
  2. BENYLIN 1 ALL-IN-ONE COLD AND FLU DAYTIME [Suspect]
     Indication: NASOPHARYNGITIS
     Route: 048
     Dates: start: 20131001, end: 20131001
  3. BENYLIN 1 ALL-IN-ONE COLD AND FLU NIGHTTIME [Suspect]
     Indication: INFLUENZA
     Route: 048
     Dates: start: 20131001, end: 20131001
  4. BENYLIN 1 ALL-IN-ONE COLD AND FLU NIGHTTIME [Suspect]
     Indication: NASOPHARYNGITIS
     Route: 048
     Dates: start: 20131001, end: 20131001

REACTIONS (4)
  - Hallucination [Recovered/Resolved]
  - Abnormal dreams [Recovered/Resolved]
  - Insomnia [Recovered/Resolved]
  - Expired drug administered [Unknown]
